FAERS Safety Report 5059229-4 (Version None)
Quarter: 2006Q2

REPORT INFORMATION
  Report Type: 
  Country: None (occurrence: None)
  Receive Date: 20060629
  Receipt Date: 20060411
  Transmission Date: 20061013
  Serious: No
  Sender: FDA-Public Use
  Company Number: PHEH2006US04800

PATIENT
  Sex: 0

DRUGS (1)
  1. ENABLEX [Suspect]
     Dosage: 7.5 MG, QD

REACTIONS (1)
  - RASH [None]
